FAERS Safety Report 4490543-7 (Version None)
Quarter: 2004Q4

REPORT INFORMATION
  Report Type: 
  Country: None (occurrence: None)
  Receive Date: 20041029
  Receipt Date: 20041014
  Transmission Date: 20050328
  Serious: Yes (Other)
  Sender: FDA-Public Use
  Company Number: ES-2004-033494

PATIENT
  Age: 11 Year
  Sex: Male
  Weight: 27 kg

DRUGS (6)
  1. FLUDARABINE PHOSPHATE [Suspect]
     Indication: AUTOLOGOUS BONE MARROW TRANSPLANTATION THERAPY
     Dosage: 30 MG/M2, INTRAVENOUS
     Route: 042
     Dates: start: 20031113, end: 20031116
  2. ANTITHYMOCYTE IMMUNOGLOBULIN (RABBIT) (ANTITHYMOCYTE IMMUNOGLOBULIN (R [Concomitant]
  3. CYCLOPHOSPHAMIDE [Concomitant]
  4. ACYCLOVIR [Concomitant]
  5. CO-TRIMOXAZOLE (CO-TRIMOXAZOLE) [Concomitant]
  6. ITRACONAZOLE [Concomitant]

REACTIONS (15)
  - BLOOD LACTATE DEHYDROGENASE INCREASED [None]
  - BLOOD TRIGLYCERIDES INCREASED [None]
  - COAGULOPATHY [None]
  - CYTOMEGALOVIRUS INFECTION [None]
  - FIBRIN D DIMER INCREASED [None]
  - HISTIOCYTOSIS HAEMATOPHAGIC [None]
  - LEUKOCYTOSIS [None]
  - LYMPHOPENIA [None]
  - PLATELET COUNT DECREASED [None]
  - PROTHROMBIN TIME PROLONGED [None]
  - PYREXIA [None]
  - RASH ERYTHEMATOUS [None]
  - RASH MACULO-PAPULAR [None]
  - SERUM FERRITIN INCREASED [None]
  - THROMBOCYTOPENIA [None]
